FAERS Safety Report 25364284 (Version 1)
Quarter: 2025Q2

REPORT INFORMATION
  Report Type: Spontaneous
  Country: US (occurrence: None)
  Receive Date: 20250523
  Receipt Date: 20250523
  Transmission Date: 20250717
  Serious: Yes (Hospitalization)
  Sender: FDA-CTU
  Company Number: None

PATIENT
  Age: 52 Year
  Sex: Female

DRUGS (1)
  1. IBRANCE [Suspect]
     Active Substance: PALBOCICLIB
     Indication: Breast cancer female
     Dosage: 125 MG DAILY ORAL ?
     Route: 048
     Dates: start: 20250409, end: 20250412

REACTIONS (3)
  - Nephrolithiasis [None]
  - Ureteric obstruction [None]
  - Septic shock [None]

NARRATIVE: CASE EVENT DATE: 20250409
